FAERS Safety Report 4453873-0 (Version None)
Quarter: 2004Q3

REPORT INFORMATION
  Report Type: 
  Country: None (occurrence: None)
  Receive Date: 20040920
  Receipt Date: 20040804
  Transmission Date: 20050211
  Serious: Yes (Death)
  Sender: FDA-Public Use
  Company Number: GB-MERCK-0408GBR00052

PATIENT
  Age: 79 Year
  Sex: Female

DRUGS (7)
  1. ACETAMINOPHEN AND DIHYDROCODEINE BITARTRATE [Concomitant]
     Route: 065
  2. ASPIRIN [Concomitant]
     Route: 048
  3. HALOPERIDOL [Concomitant]
     Route: 065
  4. IBUPROFEN [Concomitant]
     Route: 065
     Dates: end: 20030801
  5. PAROXETINE [Concomitant]
     Route: 065
  6. VIOXX [Suspect]
     Indication: ARTHRALGIA
     Route: 048
     Dates: start: 20030821
  7. TEMAZEPAM [Concomitant]
     Route: 065

REACTIONS (1)
  - DUODENAL ULCER HAEMORRHAGE [None]
